FAERS Safety Report 6425638-1 (Version None)
Quarter: 2009Q4

REPORT INFORMATION
  Report Type: 
  Country: None (occurrence: None)
  Receive Date: 20091103
  Receipt Date: 20091020
  Transmission Date: 20100525
  Serious: Yes (Hospitalization)
  Sender: FDA-Public Use
  Company Number: US-MYLANLABS-2009S1018317

PATIENT
  Age: 72 Year
  Sex: Female

DRUGS (3)
  1. METHOTREXATE [Suspect]
     Indication: RHEUMATOID ARTHRITIS
     Dosage: ORAL METHOTREXATE 10MG ONCE WEEKLY
     Route: 048
  2. METHOTREXATE [Suspect]
     Dosage: METHOTREXATE 10MG TWICE A DAY ONCE WEEKLY ON MONDAYS
     Route: 048
  3. METHOTREXATE [Suspect]
     Dosage: METHOTREXATE 10MG TWICE DAILY
     Route: 048

REACTIONS (5)
  - ACCIDENTAL OVERDOSE [None]
  - DIARRHOEA [None]
  - DRUG PRESCRIBING ERROR [None]
  - MUCOSAL INFLAMMATION [None]
  - PANCYTOPENIA [None]
